FAERS Safety Report 13473872 (Version 2)
Quarter: 2017Q2

REPORT INFORMATION
  Report Type: Report from Study
  Country: KR (occurrence: KR)
  Receive Date: 20170424
  Receipt Date: 20170509
  Transmission Date: 20170830
  Serious: Yes (Hospitalization)
  Sender: FDA-Public Use
  Company Number: KR-GILEAD-2017-0268731

PATIENT
  Age: 73 Year
  Sex: Female
  Weight: 71 kg

DRUGS (6)
  1. DOXORUBIN [Concomitant]
     Active Substance: DOXORUBICIN
  2. CYCLOPHOSPHAMIDE. [Concomitant]
     Active Substance: CYCLOPHOSPHAMIDE
  3. VINCRISTINE [Concomitant]
     Active Substance: VINCRISTINE
  4. RITUXIMAB [Concomitant]
     Active Substance: RITUXIMAB
  5. SOLONDO [Concomitant]
     Active Substance: PREDNISOLONE
  6. TENOFOVIR DISOPROXIL FUMARATE. [Suspect]
     Active Substance: TENOFOVIR DISOPROXIL FUMARATE
     Indication: HEPATITIS B
     Dosage: 300 MG, QD
     Route: 048
     Dates: start: 20170406

REACTIONS (1)
  - Tonsillitis [Recovered/Resolved]

NARRATIVE: CASE EVENT DATE: 20170414
